FAERS Safety Report 6966456-5 (Version None)
Quarter: 2010Q3

REPORT INFORMATION
  Report Type: 
  Country: None (occurrence: None)
  Receive Date: 20100906
  Receipt Date: 20100828
  Transmission Date: 20110219
  Serious: Yes (Hospitalization, Other)
  Sender: FDA-Public Use
  Company Number: US-BIOGENIDEC-2010BI000817

PATIENT
  Age: 45 Year
  Sex: Female

DRUGS (1)
  1. TYSABRI [Suspect]
     Indication: MULTIPLE SCLEROSIS
     Route: 042
     Dates: start: 20070709

REACTIONS (5)
  - CRYING [None]
  - FOOT FRACTURE [None]
  - MEMORY IMPAIRMENT [None]
  - OSTEOMYELITIS [None]
  - SKIN LACERATION [None]
